FAERS Safety Report 8208620 (Version 7)
Quarter: 2013Q1

REPORT INFORMATION
  Report Type: Spontaneous
  Country: US (occurrence: US)
  Receive Date: 20111028
  Receipt Date: 20130311
  Transmission Date: 20140127
  Serious: Yes (Hospitalization, Other)
  Sender: FDA-Public Use
  Company Number: US-ASTRAZENECA-2010SE37888

PATIENT
  Age: 42 Year
  Sex: Female
  Weight: 57.6 kg

DRUGS (7)
  1. SEROQUEL [Suspect]
     Indication: BIPOLAR I DISORDER
     Route: 048
  2. SEROQUEL [Suspect]
     Indication: BIPOLAR DISORDER
     Route: 048
  3. SEROQUEL [Suspect]
     Indication: BIPOLAR I DISORDER
     Route: 048
  4. SEROQUEL [Suspect]
     Indication: BIPOLAR DISORDER
     Route: 048
  5. XANAX [Concomitant]
     Indication: ANXIETY DISORDER
  6. LORTAB [Concomitant]
     Indication: NEURALGIA
     Dosage: 10/650 DAILY
  7. PAXIL [Concomitant]
     Indication: DEPRESSION

REACTIONS (13)
  - Mental disorder [Unknown]
  - Suicidal ideation [Unknown]
  - Convulsion [Unknown]
  - Nervousness [Unknown]
  - Fear [Unknown]
  - Condition aggravated [Unknown]
  - Panic disorder [Unknown]
  - Impatience [Unknown]
  - Dysphonia [Unknown]
  - Drug withdrawal syndrome [Unknown]
  - Restlessness [Unknown]
  - Irritability [Unknown]
  - Drug dose omission [Unknown]
